FAERS Safety Report 21007946 (Version 1)
Quarter: 2022Q2

REPORT INFORMATION
  Report Type: Report from Study
  Country: CA (occurrence: CA)
  Receive Date: 20220627
  Receipt Date: 20220627
  Transmission Date: 20220721
  Serious: Yes (Death, Other)
  Sender: FDA-Public Use
  Company Number: CA-SUN PHARMACEUTICAL INDUSTRIES LTD-2022R1-341947

PATIENT
  Age: 69 Year
  Sex: Male

DRUGS (5)
  1. AZITHROMYCIN [Suspect]
     Active Substance: AZITHROMYCIN
     Indication: Mycobacterial infection
     Dosage: UNK
     Route: 065
  2. MOXIFLOXACIN [Suspect]
     Active Substance: MOXIFLOXACIN
     Indication: Mycobacterial infection
     Dosage: UNK
     Route: 065
  3. AMIKACIN [Suspect]
     Active Substance: AMIKACIN
     Indication: Mycobacterial infection
     Dosage: UNK
     Route: 065
  4. LINEZOLID [Suspect]
     Active Substance: LINEZOLID
     Indication: Mycobacterial infection
     Dosage: UNK
     Route: 065
  5. RIFAMPIN [Suspect]
     Active Substance: RIFAMPIN
     Indication: Mycobacterial infection
     Dosage: UNK
     Route: 065

REACTIONS (1)
  - Disease progression [Fatal]
